FAERS Safety Report 7150224-8 (Version None)
Quarter: 2010Q4

REPORT INFORMATION
  Report Type: 
  Country: None (occurrence: None)
  Receive Date: 20101124
  Receipt Date: 20101112
  Transmission Date: 20110411
  Serious: Yes (Other)
  Sender: FDA-Public Use
  Company Number: AE 2010-375

PATIENT
  Sex: Male

DRUGS (2)
  1. PRIALT [Suspect]
     Indication: PRODUCT USED FOR UNKNOWN INDICATION
     Dosage: INTRATHECAL
     Route: 037
  2. FENTANYL [Suspect]
     Indication: PRODUCT USED FOR UNKNOWN INDICATION
     Dosage: INTRATHECAL
     Route: 037

REACTIONS (1)
  - PANCREATITIS CHRONIC [None]
